FAERS Safety Report 25761309 (Version 2)
Quarter: 2025Q4

REPORT INFORMATION
  Report Type: Spontaneous
  Country: US (occurrence: US)
  Receive Date: 20250904
  Receipt Date: 20251017
  Transmission Date: 20260118
  Serious: Yes (Hospitalization, Other)
  Sender: PFIZER
  Company Number: US-PFIZER INC-202500173533

PATIENT
  Age: 54 Year
  Sex: Female
  Weight: 89.796 kg

DRUGS (1)
  1. LITFULO [Suspect]
     Active Substance: RITLECITINIB TOSYLATE
     Indication: Alopecia areata
     Dosage: TOOK (1) 50 MG CAPSULE
     Route: 048
     Dates: start: 20250827, end: 20250827

REACTIONS (3)
  - Loss of consciousness [Recovering/Resolving]
  - Hypersensitivity [Recovering/Resolving]
  - Lethargy [Recovered/Resolved]

NARRATIVE: CASE EVENT DATE: 20250827
